FAERS Safety Report 4872789-9 (Version None)
Quarter: 2006Q1

REPORT INFORMATION
  Report Type: 
  Country: None (occurrence: None)
  Receive Date: 20060103
  Receipt Date: 20051223
  Transmission Date: 20060701
  Serious: Yes (Other)
  Sender: FDA-Public Use
  Company Number: 200514456GDS

PATIENT
  Age: 66 Year
  Sex: Female
  Weight: 58 kg

DRUGS (13)
  1. ASPIRIN [Suspect]
     Indication: AORTIC THROMBOSIS
     Dosage: 100 MG, TOTAL DAILY, ORAL
     Route: 048
     Dates: start: 20051118, end: 20051126
  2. METHOTREXATE [Suspect]
     Indication: FIBROSIS
     Dosage: 10 MG, TOTAL DAILY, ORAL
     Route: 048
     Dates: end: 20051126
  3. METHOTREXATE [Suspect]
     Indication: INTERSTITIAL LUNG DISEASE
     Dosage: 10 MG, TOTAL DAILY, ORAL
     Route: 048
     Dates: end: 20051126
  4. ESOMEPRAZOLE [Suspect]
     Dosage: 40 MG, TOTAL DAILY, ORAL
     Route: 048
     Dates: end: 20051126
  5. EZETIMIBE [Concomitant]
  6. ALLOPURINOL [Concomitant]
  7. TORSEMIDE [Concomitant]
  8. CLOPIDOGREL [Concomitant]
  9. METOPROLOL [Concomitant]
  10. PREDNISONE [Concomitant]
  11. AMLODIPINE [Concomitant]
  12. COLECALCIFEROL [Concomitant]
  13. LISINOPRIL [Concomitant]

REACTIONS (8)
  - ANAEMIA MACROCYTIC [None]
  - APLASIA [None]
  - DRUG INTERACTION [None]
  - DRUG LEVEL INCREASED [None]
  - EPISTAXIS [None]
  - INCORRECT DOSE ADMINISTERED [None]
  - PANCYTOPENIA [None]
  - PYREXIA [None]
